FAERS Safety Report 5075432-1 (Version None)
Quarter: 2006Q3

REPORT INFORMATION
  Report Type: 
  Country: None (occurrence: None)
  Receive Date: 20060809
  Receipt Date: 20060727
  Transmission Date: 20061208
  Serious: Yes (Hospitalization, Other)
  Sender: FDA-Public Use
  Company Number: PHBS2006DE11267

PATIENT
  Age: 62 Year
  Sex: Male

DRUGS (3)
  1. CYCLOSPORINE [Suspect]
     Indication: LIVER TRANSPLANT
     Dates: start: 20040901
  2. SIMULECT [Suspect]
     Indication: LIVER TRANSPLANT
     Dates: start: 20040901
  3. CORTICOSTEROIDS [Suspect]
     Indication: LIVER TRANSPLANT
     Dates: start: 20040901

REACTIONS (13)
  - ALANINE AMINOTRANSFERASE INCREASED [None]
  - ANTI-HBS ANTIBODY POSITIVE [None]
  - ASPARTATE AMINOTRANSFERASE INCREASED [None]
  - BILIARY ISCHAEMIA [None]
  - BLOOD BILIRUBIN INCREASED [None]
  - GLUTAMATE DEHYDROGENASE INCREASED [None]
  - HEPATIC ARTERY THROMBOSIS [None]
  - HEPATITIS B [None]
  - HEPATITIS B SURFACE ANTIGEN POSITIVE [None]
  - KAPOSI'S SARCOMA [None]
  - LIVER FUNCTION TEST ABNORMAL [None]
  - LIVER TRANSPLANT [None]
  - VIRAL TEST POSITIVE [None]
